FAERS Safety Report 19450760 (Version 7)
Quarter: 2021Q4

REPORT INFORMATION
  Report Type: Spontaneous
  Country: GB (occurrence: GB)
  Receive Date: 20210622
  Receipt Date: 20211225
  Transmission Date: 20220303
  Serious: Yes (Death, Hospitalization, Other)
  Sender: FDA-Public Use
  Company Number: NVSC2021GB133461

PATIENT
  Age: 53 Year
  Sex: Male
  Weight: 125 kg

DRUGS (37)
  1. OXYCODONE [Suspect]
     Active Substance: OXYCODONE
     Indication: Pelvic pain
     Dosage: 5 MG QD
     Route: 048
     Dates: start: 20201105
  2. OXYCODONE [Suspect]
     Active Substance: OXYCODONE
     Dosage: 400 MG, QD
     Route: 048
  3. BISOPROLOL [Suspect]
     Active Substance: BISOPROLOL
     Indication: Coronary artery disease
     Dosage: 7.5 MG, QD
     Route: 048
     Dates: start: 2017
  4. BISOPROLOL [Suspect]
     Active Substance: BISOPROLOL
     Dosage: 7.5 MG, QD
     Route: 048
     Dates: start: 20210308
  5. FUROSEMIDE [Suspect]
     Active Substance: FUROSEMIDE
     Indication: Coronary artery disease
     Dosage: 20 MG, QD
     Route: 048
     Dates: start: 20201125
  6. FUROSEMIDE [Suspect]
     Active Substance: FUROSEMIDE
     Dosage: 20 MG, QD
     Route: 048
     Dates: start: 20210308
  7. GEMCITABINE [Suspect]
     Active Substance: GEMCITABINE
     Indication: Leiomyosarcoma
     Dosage: 2128 MG, FREQUENCY: D1 AND D8
     Route: 042
     Dates: start: 20201117
  8. GEMCITABINE [Suspect]
     Active Substance: GEMCITABINE
     Indication: Undifferentiated sarcoma
     Dosage: 2660 MG (DAY 1 AND DAY 8)
     Route: 042
     Dates: end: 20201124
  9. GEMCITABINE [Suspect]
     Active Substance: GEMCITABINE
     Dosage: 2128 MG, FREQUENCY: D1 AND D8
     Route: 042
     Dates: start: 20201210
  10. GEMCITABINE [Suspect]
     Active Substance: GEMCITABINE
     Dosage: 2128 MG (DAY 1 AND DAY 8)
     Route: 042
     Dates: end: 20201210
  11. GEMCITABINE [Suspect]
     Active Substance: GEMCITABINE
     Dosage: 1710 MILLIGRAM, FREQUENCY: D1 AND D8
     Route: 042
     Dates: start: 20210304, end: 20210304
  12. METOCLOPRAMIDE [Suspect]
     Active Substance: METOCLOPRAMIDE
     Indication: Nausea
     Dosage: 10 MG, QD
     Route: 048
     Dates: start: 20201206, end: 2021
  13. OXYCONTIN [Suspect]
     Active Substance: OXYCODONE HYDROCHLORIDE
     Indication: Pain
     Dosage: 30 MG, QD
     Route: 048
     Dates: start: 20201105
  14. OXYCONTIN [Suspect]
     Active Substance: OXYCODONE HYDROCHLORIDE
     Dosage: 40 MG QD
     Route: 048
     Dates: start: 20210224
  15. OXYCONTIN [Suspect]
     Active Substance: OXYCODONE HYDROCHLORIDE
     Dosage: 30 MG, QD
     Route: 048
     Dates: start: 20210224
  16. PEMBROLIZUMAB [Suspect]
     Active Substance: PEMBROLIZUMAB
     Indication: Pleomorphic leiomyosarcoma
     Dosage: 200 MG, QW
     Route: 042
     Dates: start: 20201117, end: 20210304
  17. PEMBROLIZUMAB [Suspect]
     Active Substance: PEMBROLIZUMAB
     Indication: Undifferentiated sarcoma
     Dosage: 200 MG, FREQUENCY: D1
     Route: 042
     Dates: start: 20201210
  18. PEMBROLIZUMAB [Suspect]
     Active Substance: PEMBROLIZUMAB
     Indication: Leiomyosarcoma
     Dosage: 200 MG, FREQUENCY: D1
     Route: 042
     Dates: start: 20210304
  19. PEMBROLIZUMAB [Suspect]
     Active Substance: PEMBROLIZUMAB
     Dosage: 200 MG, Q3W
     Route: 042
     Dates: start: 20210708, end: 20210708
  20. LOSARTAN POTASSIUM [Suspect]
     Active Substance: LOSARTAN POTASSIUM
     Indication: Hypertension
     Dosage: 50 MG, QD
     Route: 048
     Dates: start: 20201206
  21. LOSARTAN POTASSIUM [Suspect]
     Active Substance: LOSARTAN POTASSIUM
     Dosage: 50 MG, QD
     Route: 065
  22. LOSARTAN POTASSIUM [Suspect]
     Active Substance: LOSARTAN POTASSIUM
     Dosage: 50 MG, QD
     Route: 048
     Dates: start: 20210308
  23. ACETAMINOPHEN [Concomitant]
     Active Substance: ACETAMINOPHEN
     Indication: Pelvic pain
     Dosage: 1 G, QD (PRN)
     Route: 048
     Dates: start: 2008, end: 2021
  24. ACETAMINOPHEN [Concomitant]
     Active Substance: ACETAMINOPHEN
     Dosage: 1 GRAM, QD/PRN
     Route: 048
     Dates: end: 20210728
  25. ASPIRIN [Concomitant]
     Active Substance: ASPIRIN
     Indication: Prophylaxis
     Dosage: 75 MG, QD
     Route: 048
     Dates: start: 2017, end: 20210308
  26. ATORVASTATIN [Concomitant]
     Active Substance: ATORVASTATIN
     Indication: Coronary artery disease
     Dosage: 80 MG, QD
     Route: 048
     Dates: start: 2017, end: 20210308
  27. CLOTRIMAZOLE [Concomitant]
     Active Substance: CLOTRIMAZOLE
     Indication: Intertrigo
     Dosage: DOSE: T, BID
     Route: 061
     Dates: start: 20201123, end: 20201127
  28. GABAPENTIN [Concomitant]
     Active Substance: GABAPENTIN
     Indication: Neuralgia
     Dosage: 300 MG MANE, 600 MG NOCTE
     Route: 048
     Dates: start: 20201125, end: 20201127
  29. GABAPENTIN [Concomitant]
     Active Substance: GABAPENTIN
     Indication: Neuralgia
  30. LANOLIN [Concomitant]
     Active Substance: LANOLIN
     Indication: Rash
     Dosage: UNK, TID
     Route: 061
     Dates: start: 20201123, end: 2021
  31. MINERAL OIL [Concomitant]
     Active Substance: MINERAL OIL
     Indication: Rash
     Dosage: UNK, TID
     Route: 061
     Dates: start: 20201123, end: 2021
  32. PETROLATUM [Concomitant]
     Active Substance: PETROLATUM
     Indication: Rash
     Dosage: UNK, TID
     Route: 061
     Dates: start: 20201123, end: 2021
  33. LANSOPRAZOLE [Concomitant]
     Active Substance: LANSOPRAZOLE
     Indication: Gastrooesophageal reflux disease
     Dosage: 30 MILLIGRAM, QD
     Route: 048
     Dates: start: 2017, end: 20210308
  34. LIDOCAINE [Concomitant]
     Active Substance: LIDOCAINE
     Indication: Pain
     Dosage: DOSE: T TOPICAL, TID
     Route: 061
     Dates: start: 20201109, end: 2021
  35. PIPERACILLIN SODIUM\TAZOBACTAM SODIUM [Concomitant]
     Active Substance: PIPERACILLIN SODIUM\TAZOBACTAM SODIUM
     Indication: Pyrexia
     Dosage: 4.5 G, Q6H
     Route: 042
  36. AMOXICILLIN\CLAVULANATE POTASSIUM [Concomitant]
     Active Substance: AMOXICILLIN\CLAVULANATE POTASSIUM
     Indication: Product used for unknown indication
     Dosage: 7 DAY COURSE
     Route: 048
  37. LANOLIN\LIGHT MINERAL OIL\PARAFFIN [Concomitant]
     Active Substance: LANOLIN\LIGHT MINERAL OIL\PARAFFIN
     Indication: Rash
     Dosage: UNK, TID
     Route: 061
     Dates: start: 20201123, end: 2021

REACTIONS (13)
  - Blood bilirubin increased [Fatal]
  - Death [Fatal]
  - Pneumonia [Fatal]
  - Skin infection [Fatal]
  - Cellulitis [Fatal]
  - Cardiac failure [Fatal]
  - Dyspnoea [Fatal]
  - Fall [Fatal]
  - Accident [Fatal]
  - Urinary retention [Fatal]
  - Urinary tract infection [Fatal]
  - Constipation [Fatal]
  - Dizziness [Fatal]

NARRATIVE: CASE EVENT DATE: 20201128
